FAERS Safety Report 4841457-1 (Version None)
Quarter: 2005Q4

REPORT INFORMATION
  Report Type: 
  Country: None (occurrence: None)
  Receive Date: 20051130
  Receipt Date: 20040607
  Transmission Date: 20060501
  Serious: Yes (Death)
  Sender: FDA-Public Use
  Company Number: DK-BOEHRINGER INGELHEIM PHARMACEUTICALS, INC.-2004-SW-00165DB

PATIENT
  Sex: Male

DRUGS (3)
  1. VIRAMUNE TAB 200 MG [Suspect]
     Indication: HIV INFECTION
     Dates: start: 20040420
  2. VIREAD [Concomitant]
     Dates: start: 20031216
  3. EPIVIR [Concomitant]
     Dates: start: 20010116

REACTIONS (12)
  - COAGULOPATHY [None]
  - FACE OEDEMA [None]
  - HEPATIC ENCEPHALOPATHY [None]
  - HEPATIC FAILURE [None]
  - HEPATORENAL SYNDROME [None]
  - HYPOTENSION [None]
  - LEUKOCYTOSIS [None]
  - MALAISE [None]
  - METABOLIC ACIDOSIS [None]
  - PANCREATITIS [None]
  - RENAL IMPAIRMENT [None]
  - THROMBOCYTOPENIA [None]
